FAERS Safety Report 6451708-8 (Version None)
Quarter: 2009Q4

REPORT INFORMATION
  Report Type: 
  Country: None (occurrence: None)
  Receive Date: 20091123
  Receipt Date: 20091117
  Transmission Date: 20100525
  Serious: Yes (Death, Hospitalization)
  Sender: FDA-Public Use
  Company Number: NL-ELI_LILLY_AND_COMPANY-NL200911004861

PATIENT
  Sex: Male

DRUGS (7)
  1. PEMETREXED [Suspect]
     Indication: MESOTHELIOMA MALIGNANT
     Dosage: 500 MG/M2, EVERY 3 WEEKS
     Route: 042
     Dates: start: 20090918
  2. CISPLATIN [Suspect]
     Indication: MESOTHELIOMA MALIGNANT
     Dosage: 75 MG/M2, EVERY 3 WEEKS
     Route: 042
     Dates: start: 20090918
  3. AG-013736(AXITINIB) [Suspect]
     Indication: MESOTHELIOMA MALIGNANT
     Dosage: UNK, 2/D ON DAYS 2 TILL DAY 21 OF EACH CYCLE
     Route: 048
     Dates: start: 20090919
  4. FENTANYL-100 [Concomitant]
  5. MORPHINE [Concomitant]
  6. ADALAT [Concomitant]
  7. CIPROFLOXACIN [Concomitant]

REACTIONS (2)
  - CHEST PAIN [None]
  - PNEUMONIA [None]
